FAERS Safety Report 7679975-3 (Version None)
Quarter: 2011Q3

REPORT INFORMATION
  Report Type: 
  Country: None (occurrence: None)
  Receive Date: 20110812
  Receipt Date: 20110802
  Transmission Date: 20111222
  Serious: Yes (Hospitalization, Other)
  Sender: FDA-Public Use
  Company Number: US-AMGEN-USASP2011015125

PATIENT
  Age: 85 Year
  Sex: Male

DRUGS (19)
  1. ASPIRIN [Concomitant]
     Dosage: 81 MG, UNK
  2. KETOCONAZOLE [Concomitant]
     Dosage: 200 MG, TID
  3. PREDNISONE [Concomitant]
     Dosage: 5 MG, UNK
  4. PROPRANOLOL [Concomitant]
     Dosage: 80 MG, UNK
  5. CALCIUM CARBONATE [Concomitant]
  6. VITAMIN D [Concomitant]
  7. REPAGLINIDE [Concomitant]
     Dosage: 0.5 MG, TID
  8. TAMSULOSIN HCL [Concomitant]
  9. FIRMAGON [Concomitant]
  10. BICALUTAMIDE [Concomitant]
     Dosage: 50 MG, UNK
  11. PRIMIDONE [Concomitant]
     Dosage: 50 MG, UNK
  12. ZOLPIDEM TARTRATE [Concomitant]
     Dosage: 5 MG, UNK
  13. XGEVA [Suspect]
     Indication: METASTASES TO BONE
     Dosage: 120 MG, Q4WK
     Dates: start: 20110302
  14. ISOSORBIDE MONONITRATE [Concomitant]
     Dosage: 60 MG, UNK
  15. ONDANSETRON [Concomitant]
     Dosage: 8 MG, Q8H
  16. CALCITRIOL [Concomitant]
     Dosage: 0.25 MG, BID
  17. CABAZETAXEL [Concomitant]
  18. CASODEX [Concomitant]
  19. CALCIUM CARBONATE [Concomitant]
     Dosage: 1250 MG, UNK

REACTIONS (14)
  - HYPOMAGNESAEMIA [None]
  - HYPOPHOSPHATAEMIA [None]
  - OEDEMA PERIPHERAL [None]
  - GAIT DISTURBANCE [None]
  - NERVOUSNESS [None]
  - HYPERHIDROSIS [None]
  - HYPERTENSION [None]
  - PALLOR [None]
  - BLOOD PARATHYROID HORMONE INCREASED [None]
  - CARDIAC FAILURE CONGESTIVE [None]
  - MALAISE [None]
  - HYPOVITAMINOSIS [None]
  - HYPOCALCAEMIA [None]
  - VENTRICULAR TACHYCARDIA [None]
